FAERS Safety Report 8259049-3 (Version None)
Quarter: 2012Q2

REPORT INFORMATION
  Report Type: 
  Country: None (occurrence: None)
  Receive Date: 20120404
  Receipt Date: 20120328
  Transmission Date: 20120825
  Serious: Yes (Other)
  Sender: FDA-Public Use
  Company Number: GB-ROCHE-1053560

PATIENT
  Age: 65 Year
  Sex: Female

DRUGS (9)
  1. OMEPRAZOLE [Concomitant]
  2. IRBESARTAN [Concomitant]
  3. SIMVASTATIN [Concomitant]
  4. RAMIPRIL [Concomitant]
  5. LEVOTHYROXINE SODIUM [Concomitant]
  6. BEVACIZUMAB [Suspect]
     Indication: DIABETIC RETINAL OEDEMA
     Dosage: 1.25MG/0.05ML
     Route: 050
     Dates: start: 20120221, end: 20120221
  7. DOXAZOSIN MESYLATE [Concomitant]
  8. NOVOMIX [Concomitant]
  9. ASPIRIN [Concomitant]

REACTIONS (2)
  - PSEUDOENDOPHTHALMITIS [None]
  - HYPOPYON [None]
